FAERS Safety Report 7334981-3 (Version None)
Quarter: 2011Q1

REPORT INFORMATION
  Report Type: 
  Country: None (occurrence: None)
  Receive Date: 20110307
  Receipt Date: 20110301
  Transmission Date: 20110831
  Serious: Yes (Death, Other)
  Sender: FDA-Public Use
  Company Number: US-ROCHE-761033

PATIENT
  Sex: Female
  Weight: 68.8 kg

DRUGS (18)
  1. BENADRYL [Concomitant]
     Dosage: DOSE: 50 MG/ML, FREQUENCY: WEEK 1,2, 3 OF EVERY 4 WEEK CYCLE.
  2. FLONASE [Concomitant]
     Dosage: DOSE: 0.05MG/INH, FORM: NASAL SPRAY
     Route: 055
  3. NEXIUM [Concomitant]
     Dosage: FORM: DELAYED RELEASE CAPSULE, INDICATION: REFLUX
     Route: 048
  4. DECADRON [Concomitant]
     Dosage: FREQUENCY: WEEK 1,2,3 OF EVERY 4 WEEK CYCLE, INDICATION: RECATION PREVENTION
     Route: 042
  5. NORVASC [Concomitant]
     Indication: BLOOD PRESSURE
     Route: 048
  6. ZANTAC [Concomitant]
     Dosage: INDICATION: PREMEDICATION REACTION, FREQUENCY: WEEK 1,2,3 OF EVERY 4 WEEKS CYCLE
     Route: 042
  7. COMBIVENT [Concomitant]
     Dosage: AEROSOL WITH ADAPTER
     Route: 055
  8. ALOXI [Concomitant]
     Indication: NAUSEA
     Dosage: DOSE: 025MG/5ML, FORM: SOLUTION, FREQUENCY: WEEK 1,2,3 OF EVERY 4 WEEK CYCLE
     Route: 042
  9. ASPIRIN [Concomitant]
     Dosage: INDICATION: HEART, ENTERIC COATED CAPSULE.
     Route: 048
  10. DAYPRO [Concomitant]
     Indication: PAIN
     Route: 048
  11. GEMZAR [Concomitant]
     Indication: CHEMOTHERAPY
     Dosage: FREQUENCY: WEEK 1,2,3 OF EVERY 4 WEEK CYCLE
     Route: 042
  12. BEVACIZUMAB [Suspect]
     Dosage: FREQUENCY:D1,15 OF28 DAYS CYCLE DOSE RANGE:780 MG TO 700 AS/PT'S WT, LAST DOSE PRIOR TO SAE 2 FEB 11
     Route: 065
     Dates: start: 20101028
  13. CALTRATE 600 + D [Concomitant]
     Route: 048
  14. CHERATUSSIN AC [Concomitant]
     Indication: COUGH
     Dosage: DOSE: 10-100 MG/5 ML, FREQUENCY: 1-2TSP EVERY 4-6 HOURS AS NEEDED.
     Route: 048
  15. FOSINOPRIL SODIUM [Concomitant]
     Indication: BLOOD PRESSURE
     Route: 048
  16. MARINOL [Concomitant]
     Route: 048
  17. TAXOL [Concomitant]
     Indication: CHEMOTHERAPY
     Dosage: WEEK 1,2,3 OF EVERY 4 WEEKS CYCLE
     Route: 042
  18. IMODIUM [Concomitant]
     Dosage: FREQUENCY: 2 PILLS WITH 1 ST DIARRHEA STOOL AND THEN 1 AFTER EACH LOOSE STOOL.
     Route: 048

REACTIONS (2)
  - DYSPNOEA [None]
  - DEATH [None]
